FAERS Safety Report 4472154-2 (Version None)
Quarter: 2004Q4

REPORT INFORMATION
  Report Type: 
  Country: None (occurrence: None)
  Receive Date: 20041012
  Receipt Date: 20041001
  Transmission Date: 20050328
  Serious: Yes (Disabling)
  Sender: FDA-Public Use
  Company Number: US-MERCK-0410USA00317

PATIENT
  Age: 32 Year
  Sex: Female

DRUGS (6)
  1. NEXIUM [Concomitant]
     Route: 065
  2. INSULIN [Concomitant]
     Route: 065
  3. METOPROLOL [Concomitant]
     Route: 065
  4. INDERAL [Concomitant]
     Route: 065
  5. VIOXX [Suspect]
     Indication: PAIN
     Route: 048
     Dates: start: 20040916, end: 20040919
  6. VIOXX [Suspect]
     Route: 048
     Dates: start: 20040920, end: 20041001

REACTIONS (4)
  - ERUCTATION [None]
  - FLATULENCE [None]
  - PALPITATIONS [None]
  - TACHYCARDIA [None]
